FAERS Safety Report 5689902-6 (Version None)
Quarter: 2008Q1

REPORT INFORMATION
  Report Type: 
  Country: None (occurrence: None)
  Receive Date: 20080331
  Receipt Date: 20080331
  Transmission Date: 20080703
  Serious: No
  Sender: FDA-Public Use
  Company Number: None

PATIENT
  Age: 27 Year
  Sex: Male
  Weight: 74.8435 kg

DRUGS (1)
  1. AVELOX [Suspect]
     Indication: THROAT IRRITATION
     Dosage: 1 PILL ONCE A DAY PO
     Route: 048
     Dates: start: 20080328, end: 20080329

REACTIONS (2)
  - RASH GENERALISED [None]
  - RASH PRURITIC [None]
